FAERS Safety Report 20246439 (Version 2)
Quarter: 2022Q1

REPORT INFORMATION
  Report Type: Spontaneous
  Country: US (occurrence: US)
  Receive Date: 20211229
  Receipt Date: 20220117
  Transmission Date: 20220423
  Serious: Yes (Death)
  Sender: FDA-Public Use
  Company Number: US-VERICEL-US-VCEL-21-000205

PATIENT
  Sex: Male

DRUGS (1)
  1. MACI [Suspect]
     Active Substance: AUTOLOGOUS CULTURED CHONDROCYTES\SUS SCROFA COLLAGEN
     Indication: Cartilage injury
     Dosage: UNK
     Route: 065

REACTIONS (1)
  - Death [Fatal]
